FAERS Safety Report 6335358-X (Version None)
Quarter: 2009Q3

REPORT INFORMATION
  Report Type: 
  Country: None (occurrence: None)
  Receive Date: 20090831
  Receipt Date: 20090818
  Transmission Date: 20100115
  Serious: No
  Sender: FDA-Public Use
  Company Number: US-ELI_LILLY_AND_COMPANY-US200908004701

PATIENT
  Sex: Female

DRUGS (3)
  1. CYMBALTA [Suspect]
     Indication: MAJOR DEPRESSION
     Dosage: 30 MG, UNK
     Dates: start: 20090101, end: 20090101
  2. CYMBALTA [Suspect]
     Dosage: 60 MG, UNK
     Dates: start: 20090101, end: 20090101
  3. CYMBALTA [Suspect]
     Dosage: 120 MG, UNK
     Dates: start: 20090101, end: 20090101

REACTIONS (2)
  - ALANINE AMINOTRANSFERASE INCREASED [None]
  - ASPARTATE AMINOTRANSFERASE INCREASED [None]
